FAERS Safety Report 11043113 (Version 1)
Quarter: 2015Q2

REPORT INFORMATION
  Report Type: Spontaneous
  Country: US (occurrence: None)
  Receive Date: 20150416
  Receipt Date: 20150416
  Transmission Date: 20150821
  Serious: Yes (Disabling)
  Sender: FDA-Public Use
  Company Number: None

PATIENT
  Age: 30 Year
  Sex: Female
  Weight: 63.5 kg

DRUGS (6)
  1. LUPRON [Suspect]
     Active Substance: LEUPROLIDE ACETATE
     Indication: ENDOMETRIOSIS
     Dosage: 3 MONTH INTERVALS
     Route: 030
     Dates: start: 1999, end: 2001
  2. TEGRETOL [Concomitant]
     Active Substance: CARBAMAZEPINE
  3. OXAZEPAM. [Concomitant]
     Active Substance: OXAZEPAM
  4. DULEXETINR [Concomitant]
  5. TIZANIDINE (TIZANIDINE) [Concomitant]
     Active Substance: TIZANIDINE
  6. LAMICTAL [Concomitant]
     Active Substance: LAMOTRIGINE

REACTIONS (22)
  - Endometriosis [None]
  - Asthenia [None]
  - Pain [None]
  - Constipation [None]
  - Abdominal distension [None]
  - Rash [None]
  - Skin exfoliation [None]
  - Headache [None]
  - Night sweats [None]
  - Hypoaesthesia [None]
  - Paraesthesia [None]
  - Fatigue [None]
  - Amnesia [None]
  - Limb discomfort [None]
  - Muscle spasms [None]
  - Irritability [None]
  - Menopausal symptoms [None]
  - Dry skin [None]
  - Bone pain [None]
  - Movement disorder [None]
  - Hyperhidrosis [None]
  - Hot flush [None]

NARRATIVE: CASE EVENT DATE: 20070201
